FAERS Safety Report 5127411-3 (Version None)
Quarter: 2006Q4

REPORT INFORMATION
  Report Type: 
  Country: None (occurrence: None)
  Receive Date: 20061013
  Receipt Date: 20061013
  Transmission Date: 20070319
  Serious: Yes (Hospitalization)
  Sender: FDA-Public Use
  Company Number: None

PATIENT
  Age: 56 Year
  Sex: Male
  Weight: 98.8842 kg

DRUGS (1)
  1. VARDENAFIL 20MG [Suspect]
     Indication: ERECTILE DYSFUNCTION
     Dosage: 10 MG PRN
     Dates: start: 20060120, end: 20060809

REACTIONS (5)
  - DIZZINESS [None]
  - DYSPNOEA [None]
  - HEADACHE [None]
  - NAUSEA [None]
  - OVERDOSE [None]
